FAERS Safety Report 19570649 (Version 1)
Quarter: 2021Q3

REPORT INFORMATION
  Report Type: Spontaneous
  Country: US (occurrence: US)
  Receive Date: 20210715
  Receipt Date: 20210715
  Transmission Date: 20211014
  Serious: Yes (Hospitalization)
  Sender: FDA-Public Use
  Company Number: US-GE HEALTHCARE LIFE SCIENCES-2021CSU003377

PATIENT
  Age: 58 Year
  Sex: Male

DRUGS (6)
  1. ETHIODIZED OIL [Concomitant]
     Active Substance: ETHIODIZED OIL
     Dosage: 20 ML
  2. OMNIPAQUE [Suspect]
     Active Substance: IOHEXOL
     Indication: HEPATIC LESION
  3. MITOMYCIN C [Concomitant]
     Active Substance: MITOMYCIN
     Dosage: 10 MG
  4. DOXORUBICIN [Concomitant]
     Active Substance: DOXORUBICIN
     Dosage: 50 MG
  5. OMNIPAQUE [Suspect]
     Active Substance: IOHEXOL
     Indication: TRANSCATHETER ARTERIAL CHEMOEMBOLISATION
     Dosage: 60 ML, SINGLE
     Route: 013
  6. CEFAZOLIN [Concomitant]
     Active Substance: CEFAZOLIN
     Dosage: 2 GM
     Route: 042

REACTIONS (1)
  - Acute kidney injury [Recovering/Resolving]
